FAERS Safety Report 12847956 (Version 1)
Quarter: 2016Q4

REPORT INFORMATION
  Report Type: Spontaneous
  Country: US (occurrence: US)
  Receive Date: 20161014
  Receipt Date: 20161014
  Transmission Date: 20170207
  Serious: No
  Sender: FDA-Public Use
  Company Number: US-JNJFOC-20160926721

PATIENT
  Age: 75 Year
  Sex: Female
  Weight: 92.99 kg

DRUGS (4)
  1. TYLENOL 8 HR [Suspect]
     Active Substance: ACETAMINOPHEN
     Indication: ARTHRITIS
     Dosage: 1 TABLET IN AM, THEN 1 IN PM. THEN NEXT DAY 2 TABLETS IN THE AM AND 1 AT NIGHT
     Route: 048
  2. LANTUS [Concomitant]
     Active Substance: INSULIN GLARGINE
     Indication: DIABETES MELLITUS
     Route: 065
  3. TYLENOL 8 HR [Suspect]
     Active Substance: ACETAMINOPHEN
     Route: 048
  4. METFORMIN [Concomitant]
     Active Substance: METFORMIN HYDROCHLORIDE
     Indication: DIABETES MELLITUS
     Dosage: 20 YEARS
     Route: 065

REACTIONS (3)
  - Incorrect dose administered [Unknown]
  - Inappropriate schedule of drug administration [Unknown]
  - Drug effect incomplete [Unknown]
